FAERS Safety Report 15701605 (Version 2)
Quarter: 2019Q1

REPORT INFORMATION
  Report Type: Spontaneous
  Country: US (occurrence: US)
  Receive Date: 20181208
  Receipt Date: 20190105
  Transmission Date: 20190417
  Serious: No
  Sender: FDA-Public Use
  Company Number: PHHY2018US178778

PATIENT
  Sex: Female

DRUGS (1)
  1. SYSTANE COMPLETE [Suspect]
     Active Substance: PROPYLENE GLYCOL
     Indication: DRY EYE
     Dosage: UNK UNK, BID
     Route: 047

REACTIONS (3)
  - Eye irritation [Recovered/Resolved]
  - Product quality issue [Unknown]
  - Visual impairment [Recovered/Resolved]
